FAERS Safety Report 9806306 (Version 4)
Quarter: 2014Q1

REPORT INFORMATION
  Report Type: Report from Study
  Country: GB (occurrence: GB)
  Receive Date: 20140109
  Receipt Date: 20140304
  Transmission Date: 20141002
  Serious: Yes (Hospitalization)
  Sender: FDA-Public Use
  Company Number: GB-BAYER-2013-115922

PATIENT
  Age: 72 Year
  Sex: Male
  Weight: 72.4 kg

DRUGS (8)
  1. ALPHARADIN [Suspect]
     Indication: HORMONE-REFRACTORY PROSTATE CANCER
     Dosage: UNK
     Route: 042
     Dates: start: 20130807, end: 20130807
  2. ALPHARADIN [Suspect]
     Indication: METASTASES TO BONE
     Dosage: UNK
     Route: 042
     Dates: start: 20130904, end: 20130904
  3. ZOMETA [Concomitant]
     Indication: PROSTATE CANCER
     Dosage: TOTAL DAILY DOSE 4 MG
     Route: 042
     Dates: start: 20130910
  4. ASPIRIN (E.C.) [ACETYLSALICYLIC ACID] [Concomitant]
     Dosage: 75 MG, QD
  5. SIMVASTATIN [Concomitant]
     Dosage: 40 MG, QD
  6. ADCAL D3 [Concomitant]
     Dosage: UNK
  7. PHOSPHATE SANDOZ [K BICARB,NA BICARB,NA+ PHOS DIBAS] [Concomitant]
  8. DEXAMETHASONE [DEXAMETHASONE] [Concomitant]
     Indication: PROSTATE CANCER
     Dosage: 2 MG, QD
     Route: 048
     Dates: start: 20130809

REACTIONS (2)
  - Hypophosphataemia [Recovered/Resolved]
  - Diarrhoea [Recovered/Resolved]
